FAERS Safety Report 5012497-7 (Version None)
Quarter: 2006Q2

REPORT INFORMATION
  Report Type: 
  Country: None (occurrence: None)
  Receive Date: 20060414
  Receipt Date: 20060113
  Transmission Date: 20061013
  Serious: No
  Sender: FDA-Public Use
  Company Number: 2006SP000238

PATIENT
  Age: 43 Year
  Sex: Female
  Weight: 111.5849 kg

DRUGS (9)
  1. LUNESTA [Suspect]
     Indication: SLEEP APNOEA SYNDROME
     Dosage: 3 MG;PRN;ORAL
     Route: 048
     Dates: start: 20060112
  2. ZYRTEC-D 12 HOUR [Concomitant]
  3. FLOVENT [Concomitant]
  4. NEXIUM [Concomitant]
  5. LEXAPRO [Concomitant]
  6. FLONASE [Concomitant]
  7. NECON [Concomitant]
  8. MULTIVITAMIN [Concomitant]
  9. AMBIEN [Concomitant]

REACTIONS (1)
  - DYSGEUSIA [None]
